FAERS Safety Report 4337841-5 (Version None)
Quarter: 2004Q2

REPORT INFORMATION
  Report Type: 
  Country: None (occurrence: None)
  Receive Date: 20040408
  Receipt Date: 20040326
  Transmission Date: 20050107
  Serious: Yes (Hospitalization)
  Sender: FDA-Public Use
  Company Number: 2004SE01723

PATIENT
  Age: 74 Year
  Sex: Male
  Weight: 68 kg

DRUGS (1)
  1. BLOPRESS [Suspect]
     Indication: ESSENTIAL HYPERTENSION
     Dosage: 8 MG DAILY PO
     Route: 048
     Dates: start: 19991122, end: 20001222

REACTIONS (3)
  - POST PROCEDURAL COMPLICATION [None]
  - RETINAL DETACHMENT [None]
  - RETINAL HAEMORRHAGE [None]
